FAERS Safety Report 10659386 (Version 1)
Quarter: 2014Q4

REPORT INFORMATION
  Report Type: Spontaneous
  Country: US (occurrence: None)
  Receive Date: 20141205
  Receipt Date: 20141205
  Transmission Date: 20150529
  Serious: Yes (Other)
  Sender: FDA-Public Use
  Company Number: 163-POMAL-14084226

PATIENT
  Age: 67 Year
  Sex: Male

DRUGS (16)
  1. ZOMETA (ZOMETA (ZOEDRONIC ACID) [Concomitant]
  2. SYNTHROID(LEVOTHYROXINE SODIUM) [Concomitant]
  3. SENNA(SENNA ALEXANDRINA) [Concomitant]
  4. VENLAFAXINE(VENLAFAXINE) [Concomitant]
  5. PAMIDRONATE (PAMIDRONATE DISODIUM) [Concomitant]
  6. SERTRALINE [Concomitant]
     Active Substance: SERTRALINE HYDROCHLORIDE
  7. ZICAM(ZINCUM) [Concomitant]
  8. SIMETHICONE [Concomitant]
     Active Substance: DIMETHICONE\SILICON DIOXIDE\SIMETHICONE
  9. DECADRON [Concomitant]
     Active Substance: DEXAMETHASONE
  10. ALLOPURINOL(ALLOPURINOL) [Concomitant]
  11. ASA (ACETYLSALCYLIC ACID) [Concomitant]
  12. COUMADIN [Concomitant]
     Active Substance: WARFARIN SODIUM
  13. POMALYST [Suspect]
     Active Substance: POMALIDOMIDE
     Indication: PLASMA CELL MYELOMA
     Route: 048
     Dates: start: 20140707, end: 20140722
  14. LASIX(FUROSEMIDE) [Concomitant]
  15. TRIAMCINOLONE ACETONIDE(TRIAMCINOLONE ACETONIDE) [Concomitant]
  16. COLACE(DOCUSATE SODIUM) [Concomitant]

REACTIONS (1)
  - Pancytopenia [None]

NARRATIVE: CASE EVENT DATE: 20140722
